FAERS Safety Report 7358386-4 (Version None)
Quarter: 2011Q1

REPORT INFORMATION
  Report Type: 
  Country: None (occurrence: None)
  Receive Date: 20110317
  Receipt Date: 20110313
  Transmission Date: 20110831
  Serious: No
  Sender: FDA-Public Use
  Company Number: US-TEVA-271634USA

PATIENT
  Sex: Female
  Weight: 49.94 kg

DRUGS (5)
  1. CITALOPRAM [Concomitant]
     Indication: DEPRESSION
  2. CITALOPRAM [Concomitant]
     Indication: ANXIETY
     Dates: start: 20100101
  3. DROSPIRENONE AND ETHINYL ESTRADIOL [Suspect]
     Indication: CONTRACEPTION
     Route: 048
     Dates: start: 19980101
  4. ADDERALL 10 [Suspect]
     Indication: ATTENTION DEFICIT/HYPERACTIVITY DISORDER
     Dates: start: 20100101
  5. PLAN B ONE-STEP [Suspect]
     Indication: POST COITAL CONTRACEPTION
     Route: 048
     Dates: start: 20110313, end: 20110313

REACTIONS (1)
  - NAUSEA [None]
